FAERS Safety Report 23309990 (Version 1)
Quarter: 2023Q4

REPORT INFORMATION
  Report Type: Spontaneous
  Country: GB (occurrence: GB)
  Receive Date: 20231218
  Receipt Date: 20231218
  Transmission Date: 20240110
  Serious: Yes (Death, Other)
  Sender: FDA-Public Use
  Company Number: GB-AMERICAN REGENT INC-2023002918

PATIENT
  Age: 87 Year
  Sex: Female

DRUGS (1)
  1. FERINJECT [Suspect]
     Active Substance: FERRIC CARBOXYMALTOSE
     Indication: Anaemia
     Dosage: UNK, SINGLE
     Dates: start: 20231120, end: 20231120

REACTIONS (4)
  - Cerebrovascular accident [Fatal]
  - Hemiplegia [Fatal]
  - Jaundice cholestatic [Not Recovered/Not Resolved]
  - Asthenia [Unknown]

NARRATIVE: CASE EVENT DATE: 20230101
